FAERS Safety Report 5348320-0 (Version None)
Quarter: 2007Q2

REPORT INFORMATION
  Report Type: 
  Country: None (occurrence: None)
  Receive Date: 20070605
  Receipt Date: 20070521
  Transmission Date: 20071010
  Serious: Yes (Other)
  Sender: FDA-Public Use
  Company Number: ACO_0293_2006

PATIENT
  Age: 80 Year
  Sex: Female

DRUGS (11)
  1. TERNELIN (TERNELIN) [Suspect]
     Dosage: (3 MG ORAL)
     Route: 048
  2. PANALDINE (PANALDINE) [Suspect]
     Dosage: (ORAL)
     Route: 048
  3. BAYASPIRIN (BAYASPIRIN) [Suspect]
     Dosage: (ORAL)
     Route: 048
  4. BLOPRESS (BLOPRESS) (NOT SPECIFIED) [Suspect]
     Dosage: (ORAL)
     Route: 048
  5. AMARYL [Suspect]
     Dosage: (ORAL)
     Route: 048
  6. BASEN (BASEN) [Suspect]
     Dosage: (ORAL)
     Route: 048
  7. GLYCORAN (GLYCORAN) [Suspect]
     Dosage: (ORAL)
     Route: 048
  8. LENDORMIN (LENDORMIN) (NOT SPECIFIED) [Suspect]
     Dosage: (ORAL)
     Route: 048
  9. DEXTROMETHORPHAN HYDROBROMIDE (MEDICON) [Suspect]
     Dosage: (ORAL)
     Route: 048
  10. HORIZON (HORIZON) [Suspect]
  11. SELBEX (SELBEX) [Suspect]
     Dosage: (ORAL)
     Route: 048

REACTIONS (1)
  - INAPPROPRIATE ANTIDIURETIC HORMONE SECRETION [None]
